FAERS Safety Report 18701912 (Version 1)
Quarter: 2021Q1

REPORT INFORMATION
  Report Type: Spontaneous
  Country: US (occurrence: US)
  Receive Date: 20210105
  Receipt Date: 20210105
  Transmission Date: 20210419
  Serious: Yes (Death)
  Sender: FDA-Public Use
  Company Number: None

PATIENT
  Age: 88 Year
  Sex: Male

DRUGS (7)
  1. HYDRALAZINE 25MG TABLET [Concomitant]
  2. FUROSEMIDE 20MG TABLET [Concomitant]
  3. NITROGLYCERIN 0.4MG SUBLINGUAL TABLET [Concomitant]
  4. ATORVASTATIN 20MG TABLET [Concomitant]
  5. LOKELMA [Suspect]
     Active Substance: SODIUM ZIRCONIUM CYCLOSILICATE
     Indication: HYPERKALAEMIA
     Route: 048
     Dates: start: 20201006, end: 20201106
  6. RANOLAZINE 1000MG ER TABLET [Concomitant]
  7. ISOSORBIDE MONO ER 30MG TABLET [Concomitant]
     Active Substance: ISOSORBIDE MONONITRATE

REACTIONS (1)
  - Death [None]

NARRATIVE: CASE EVENT DATE: 20210103
